FAERS Safety Report 4751810-2 (Version None)
Quarter: 2005Q3

REPORT INFORMATION
  Report Type: 
  Country: None (occurrence: None)
  Receive Date: 20050819
  Receipt Date: 20050518
  Transmission Date: 20060218
  Serious: No
  Sender: FDA-Public Use
  Company Number: 244244

PATIENT
  Age: 31 Year
  Sex: Female

DRUGS (5)
  1. NOVOLOG [Suspect]
     Indication: DIABETES MELLITUS INSULIN-DEPENDENT
     Dosage: IU, SUBCUTANEOUS
     Route: 058
  2. NOVOLIN N [Suspect]
     Indication: DIABETES MELLITUS INSULIN-DEPENDENT
     Dosage: IU, SUBCUTANEOUS
     Route: 058
  3. LANTUS [Concomitant]
  4. MACRODANTIN [Concomitant]
  5. PRENATAL VITAMINS (ASCORBIC ACID, BIOTIN, NICOTINIC ACID, VITAMIN D NO [Concomitant]

REACTIONS (1)
  - HYPOGLYCAEMIA [None]
